FAERS Safety Report 25787463 (Version 1)
Quarter: 2025Q3

REPORT INFORMATION
  Report Type: Spontaneous
  Country: CH (occurrence: CH)
  Receive Date: 20250910
  Receipt Date: 20250910
  Transmission Date: 20251020
  Serious: Yes (Hospitalization)
  Sender: CHEPLAPHARM
  Company Number: None

PATIENT
  Age: 30 Year
  Sex: Male

DRUGS (9)
  1. CLONAZEPAM [Suspect]
     Active Substance: CLONAZEPAM
     Route: 048
     Dates: start: 20250817, end: 20250817
  2. CLONAZEPAM [Suspect]
     Active Substance: CLONAZEPAM
     Dosage: THE MORNING?DAILY DOSE: 2.5 MILLIGRAM
     Route: 048
     Dates: end: 20250817
  3. CLONAZEPAM [Suspect]
     Active Substance: CLONAZEPAM
     Dosage: THE EVENING?DAILY DOSE: 2 MILLIGRAM
     Route: 048
     Dates: end: 20250817
  4. MORPHINE SULFATE [Suspect]
     Active Substance: MORPHINE SULFATE
     Dates: start: 20250817, end: 20250817
  5. MORPHINE SULFATE [Suspect]
     Active Substance: MORPHINE SULFATE
     Dosage: SEVERAL BLISTERS CONSUMED?DAILY DOSE: 320 MILLIGRAM
     Dates: end: 20250817
  6. ZOPICLONE [Suspect]
     Active Substance: ZOPICLONE
     Dates: start: 20250817, end: 20250817
  7. SERTRALINE [Concomitant]
     Active Substance: SERTRALINE HYDROCHLORIDE
     Dosage: DAILY DOSE: 100 MILLIGRAM
     Route: 048
  8. QUETIAPINE [Concomitant]
     Active Substance: QUETIAPINE
     Dosage: (MORNING, EVENING)?DAILY DOSE: 50 MILLIGRAM
     Route: 048
  9. ZOLPIDEM [Concomitant]
     Active Substance: ZOLPIDEM TARTRATE
     Route: 048

REACTIONS (5)
  - Altered state of consciousness [Recovered/Resolved]
  - Respiratory failure [Recovered/Resolved]
  - Respiratory acidosis [Recovered/Resolved]
  - Urinary retention [Recovered/Resolved]
  - Accidental overdose [Recovered/Resolved]

NARRATIVE: CASE EVENT DATE: 20250817
